FAERS Safety Report 7440301-6 (Version None)
Quarter: 2011Q2

REPORT INFORMATION
  Report Type: 
  Country: None (occurrence: None)
  Receive Date: 20110427
  Receipt Date: 20110418
  Transmission Date: 20111010
  Serious: Yes (Death)
  Sender: FDA-Public Use
  Company Number: GXKR2010GB10536

PATIENT
  Age: 48 Year
  Sex: Male

DRUGS (2)
  1. LAMOTRIGINE [Concomitant]
  2. CLOZAPINE [Suspect]
     Dosage: 850 MG/DAY
     Route: 065

REACTIONS (3)
  - HYPERTENSION [None]
  - CONSTIPATION [None]
  - GASTROINTESTINAL HYPOMOTILITY [None]
